FAERS Safety Report 9601297 (Version 1)
Quarter: 2013Q4

REPORT INFORMATION
  Report Type: Spontaneous
  Country: BR (occurrence: BR)
  Receive Date: 20131006
  Receipt Date: 20131006
  Transmission Date: 20140711
  Serious: Yes (Other)
  Sender: FDA-Public Use
  Company Number: BR-PFIZER INC-2013279340

PATIENT
  Age: 48 Year
  Sex: Female
  Weight: 66 kg

DRUGS (2)
  1. XALATAN [Suspect]
     Indication: INTRAOCULAR PRESSURE TEST
     Dosage: 3UG (ONE DROP IN EACH EYE), UNSPECIFIED FREQUENCY
     Route: 047
     Dates: start: 20051009, end: 2012
  2. CALCIUM CITRATE/COLECALCIFEROL/MAGNESIUM CITRATE [Concomitant]
     Indication: OSTEOPOROSIS
     Dosage: UNK
     Dates: start: 20130827

REACTIONS (2)
  - Cataract [Unknown]
  - Intraocular pressure decreased [Unknown]
